FAERS Safety Report 23450164 (Version 4)
Quarter: 2024Q1

REPORT INFORMATION
  Report Type: Spontaneous
  Country: US (occurrence: US)
  Receive Date: 20240129
  Receipt Date: 20240304
  Transmission Date: 20240410
  Serious: Yes (Other)
  Sender: FDA-Public Use
  Company Number: US-BIOVITRUM-2023-US-018157

PATIENT
  Age: 3 Month
  Sex: Male
  Weight: 3.9 kg

DRUGS (4)
  1. SYNAGIS [Suspect]
     Active Substance: PALIVIZUMAB
     Indication: Premature baby
     Dosage: 100 MG SDV/INJ PF 1 ML 1S?ONCE A MONTH
     Route: 030
  2. NYSTATIN [Concomitant]
     Active Substance: NYSTATIN
     Indication: Product used for unknown indication
  3. SIMETHICONE (DIMETHICONE) [Concomitant]
     Active Substance: DIMETHICONE
     Indication: Product used for unknown indication
     Dosage: 40MG/0.6ML DROPS SUSPENTION
  4. IRON\VITAMINS [Concomitant]
     Active Substance: IRON\VITAMINS
     Indication: Product used for unknown indication

REACTIONS (4)
  - Retroviral infection [Unknown]
  - Respiratory syncytial virus infection [Unknown]
  - Rhinovirus infection [Unknown]
  - COVID-19 [Unknown]

NARRATIVE: CASE EVENT DATE: 20231201
